FAERS Safety Report 4692372-8 (Version None)
Quarter: 2005Q2

REPORT INFORMATION
  Report Type: 
  Country: None (occurrence: None)
  Receive Date: 20050615
  Receipt Date: 20050527
  Transmission Date: 20051028
  Serious: Yes (Hospitalization)
  Sender: FDA-Public Use
  Company Number: JP_050306080

PATIENT
  Age: 54 Year
  Sex: Male
  Weight: 48 kg

DRUGS (1)
  1. GEMZAR [Suspect]
     Indication: PANCREATIC CARCINOMA
     Dosage: 1400 MG OTHER
     Route: 050
     Dates: start: 20040802

REACTIONS (6)
  - ANAEMIA [None]
  - BONE MARROW DEPRESSION [None]
  - CARDIAC FAILURE [None]
  - DILATATION VENTRICULAR [None]
  - HYPERTENSION [None]
  - OEDEMA PERIPHERAL [None]
